FAERS Safety Report 5804401-6 (Version None)
Quarter: 2008Q3

REPORT INFORMATION
  Report Type: 
  Country: None (occurrence: None)
  Receive Date: 20080707
  Receipt Date: 20080707
  Transmission Date: 20090109
  Serious: Yes (Hospitalization)
  Sender: FDA-Public Use
  Company Number: None

PATIENT
  Age: 38 Year
  Sex: Female
  Weight: 73 kg

DRUGS (1)
  1. DIPHENHYDRAMINE HCL [Suspect]
     Dosage: 100MG ONCE IV
     Route: 042
     Dates: start: 20080510, end: 20080510

REACTIONS (2)
  - AGGRESSION [None]
  - CONFUSIONAL STATE [None]
